FAERS Safety Report 5440959-7 (Version None)
Quarter: 2007Q3

REPORT INFORMATION
  Report Type: 
  Country: None (occurrence: None)
  Receive Date: 20070831
  Receipt Date: 20070820
  Transmission Date: 20080115
  Serious: Yes (Hospitalization, Disabling, Other)
  Sender: FDA-Public Use
  Company Number: US-PFIZER INC-2007043288

PATIENT
  Sex: Female
  Weight: 49.9 kg

DRUGS (2)
  1. CELEBREX [Suspect]
     Indication: ARTHRALGIA
  2. CELEBREX [Suspect]
     Indication: PAIN IN EXTREMITY

REACTIONS (3)
  - DIABETES MELLITUS [None]
  - GAIT DISTURBANCE [None]
  - MYOCARDIAL INFARCTION [None]
